FAERS Safety Report 23778510 (Version 2)
Quarter: 2024Q3

REPORT INFORMATION
  Report Type: Report from Study
  Country: CA (occurrence: CA)
  Receive Date: 20240424
  Receipt Date: 20240702
  Transmission Date: 20241016
  Serious: Yes (Other)
  Sender: AMGEN
  Company Number: CA-AMGEN-CANSL2024080918

PATIENT
  Age: 58 Year
  Sex: Female
  Weight: 59.5 kg

DRUGS (3)
  1. MVASI [Suspect]
     Active Substance: BEVACIZUMAB-AWWB
     Indication: Malignant glioma
     Dosage: 10 MILLIGRAM/KILOGRAM, Q2WK
     Route: 065
     Dates: start: 20240419
  2. MVASI [Suspect]
     Active Substance: BEVACIZUMAB-AWWB
     Dosage: 10 MILLIGRAM/KILOGRAM, Q2WK
     Route: 065
  3. MVASI [Suspect]
     Active Substance: BEVACIZUMAB-AWWB
     Dosage: 10 MILLIGRAM/KILOGRAM, Q2WK
     Route: 065

REACTIONS (6)
  - Bradycardia [Recovered/Resolved]
  - Dizziness [Recovered/Resolved]
  - Asthenia [Recovered/Resolved]
  - Headache [Not Recovered/Not Resolved]
  - Back pain [Recovered/Resolved]
  - Epistaxis [Not Recovered/Not Resolved]

NARRATIVE: CASE EVENT DATE: 20240419
